FAERS Safety Report 10348867 (Version 2)
Quarter: 2014Q3

REPORT INFORMATION
  Report Type: Spontaneous
  Country: IT (occurrence: None)
  Receive Date: 20140725
  Receipt Date: 20140729
  Transmission Date: 20150326
  Serious: Yes (Hospitalization)
  Sender: FDA-Public Use
  Company Number: AUR-APL-2014-07855

PATIENT
  Age: 84 Year
  Sex: Male

DRUGS (5)
  1. TRENTAL [Concomitant]
     Active Substance: PENTOXIFYLLINE
  2. LEVOFLOXACIN HEMIHYDRATE [Concomitant]
     Active Substance: LEVOFLOXACIN
  3. RYTMONORM [Concomitant]
     Active Substance: PROPAFENONE
  4. CARDIRENE [Concomitant]
     Active Substance: ASPIRIN DL-LYSINE
  5. METFORMIN [Suspect]
     Active Substance: METFORMIN HYDROCHLORIDE
     Indication: DIABETES MELLITUS
     Route: 048
     Dates: start: 20140101, end: 20140705

REACTIONS (2)
  - Sopor [None]
  - Hypoglycaemia [None]

NARRATIVE: CASE EVENT DATE: 20140706
